FAERS Safety Report 8464020-2 (Version None)
Quarter: 2012Q2

REPORT INFORMATION
  Report Type: 
  Country: None (occurrence: None)
  Receive Date: 20120625
  Receipt Date: 20120619
  Transmission Date: 20120825
  Serious: Yes (Other)
  Sender: FDA-Public Use
  Company Number: US-PFIZER INC-2012147807

PATIENT
  Sex: Female
  Weight: 66.667 kg

DRUGS (5)
  1. CENTRUM [Concomitant]
     Indication: ROUTINE HEALTH MAINTENANCE
     Dosage: UNK, DAILY
     Route: 048
  2. FORTICAL [Concomitant]
     Indication: OSTEOPOROSIS
     Dosage: 1 SPRAY IN EACH NOSTRIL, DAILY
     Route: 045
  3. LATANOPROST [Suspect]
     Indication: GLAUCOMA
     Dosage: 1 GTT, 1X/DAY AT BEDTIME
     Route: 047
  4. CALCIUM [Concomitant]
     Indication: OSTEOPOROSIS
     Dosage: 1200 MG, DAILY
  5. LISINOPRIL AND HYDROCHLOROTHIAZIDE [Concomitant]
     Indication: BLOOD PRESSURE ABNORMAL
     Dosage: 20/25 MG, DAILY

REACTIONS (2)
  - DRUG INEFFECTIVE [None]
  - INTRAOCULAR PRESSURE INCREASED [None]
